FAERS Safety Report 5373924-9 (Version None)
Quarter: 2007Q2

REPORT INFORMATION
  Report Type: 
  Country: None (occurrence: None)
  Receive Date: 20070627
  Receipt Date: 20070201
  Transmission Date: 20071010
  Serious: Yes (Other)
  Sender: FDA-Public Use
  Company Number: 481011

PATIENT
  Sex: Female

DRUGS (1)
  1. XELODA [Suspect]
     Indication: COLON CANCER METASTATIC
     Dosage: 1600 MG 2 PER DAY ORAL
     Route: 048
     Dates: start: 20060715, end: 20061115

REACTIONS (2)
  - DIARRHOEA [None]
  - METASTASES TO LIVER [None]
